FAERS Safety Report 5365175-9 (Version None)
Quarter: 2007Q2

REPORT INFORMATION
  Report Type: 
  Country: None (occurrence: None)
  Receive Date: 20070530
  Receipt Date: 20070318
  Transmission Date: 20071010
  Serious: No
  Sender: FDA-Public Use
  Company Number: 2006PV018872

PATIENT
  Age: 71 Year
  Sex: Female
  Weight: 73.0291 kg

DRUGS (12)
  1. BYETTA [Suspect]
     Indication: DIABETES MELLITUS NON-INSULIN-DEPENDENT
     Dosage: 10 MCG; BID; SC; 5 MCG; BID; SC; 10 MCG;BID; SC; 10 MCG; BID; SC
     Route: 058
     Dates: start: 20060626, end: 20061127
  2. BYETTA [Suspect]
     Indication: DIABETES MELLITUS NON-INSULIN-DEPENDENT
     Dosage: 10 MCG; BID; SC; 5 MCG; BID; SC; 10 MCG;BID; SC; 10 MCG; BID; SC
     Route: 058
     Dates: start: 20060901, end: 20070301
  3. BYETTA [Suspect]
     Indication: DIABETES MELLITUS NON-INSULIN-DEPENDENT
     Dosage: 10 MCG; BID; SC; 5 MCG; BID; SC; 10 MCG;BID; SC; 10 MCG; BID; SC
     Route: 058
     Dates: start: 20061128
  4. BYETTA [Suspect]
     Indication: DIABETES MELLITUS NON-INSULIN-DEPENDENT
     Dosage: 10 MCG; BID; SC; 5 MCG; BID; SC; 10 MCG;BID; SC; 10 MCG; BID; SC
     Route: 058
     Dates: start: 20070306
  5. BYETTA [Suspect]
  6. BYETTA [Suspect]
  7. GLUCOPHAGE [Concomitant]
  8. ACTOS [Concomitant]
  9. PRANDIN [Concomitant]
  10. .......................... [Concomitant]
  11. ............................... [Concomitant]
  12. ........................... [Concomitant]

REACTIONS (8)
  - BLOOD GLUCOSE INCREASED [None]
  - CONSTIPATION [None]
  - DECREASED APPETITE [None]
  - DYSPEPSIA [None]
  - GASTROOESOPHAGEAL REFLUX DISEASE [None]
  - NAUSEA [None]
  - VOMITING [None]
  - WEIGHT DECREASED [None]
